FAERS Safety Report 5725548-9 (Version None)
Quarter: 2008Q2

REPORT INFORMATION
  Report Type: 
  Country: None (occurrence: None)
  Receive Date: 20080501
  Receipt Date: 20080423
  Transmission Date: 20081010
  Serious: Yes (Other)
  Sender: FDA-Public Use
  Company Number: PHHY2008BR06650

PATIENT
  Sex: Male
  Weight: 70 kg

DRUGS (6)
  1. FORADIL [Suspect]
     Indication: ASTHMA
     Dosage: 12 MCG
     Dates: start: 20030101, end: 20050101
  2. FORADIL [Suspect]
     Dosage: 12 UG, UNK
     Dates: start: 20070101
  3. FORASEQ [Suspect]
     Indication: ASTHMA
     Dates: start: 20050101, end: 20071001
  4. BEROTEC [Concomitant]
     Indication: ASTHMA
  5. RADIOACTIVE IODINE [Concomitant]
     Indication: HYPERTHYROIDISM
     Dates: start: 20070901
  6. EUTHYROX [Concomitant]
     Dosage: 100 UG, QD
     Route: 048
     Dates: start: 20080322

REACTIONS (1)
  - HYPOTHYROIDISM [None]
